FAERS Safety Report 15977195 (Version 1)
Quarter: 2019Q1

REPORT INFORMATION
  Report Type: Spontaneous
  Country: BR (occurrence: BR)
  Receive Date: 20190218
  Receipt Date: 20190218
  Transmission Date: 20190418
  Serious: Yes (Hospitalization, Other)
  Sender: FDA-Public Use
  Company Number: PHHY2019BR033243

PATIENT
  Age: 18 Year
  Sex: Female

DRUGS (3)
  1. MYCOPHENOLATE MOFETIL. [Suspect]
     Active Substance: MYCOPHENOLATE MOFETIL
     Indication: IMMUNOSUPPRESSANT DRUG THERAPY
     Route: 065
  2. HYDROXYCHLOROQUINE [Suspect]
     Active Substance: HYDROXYCHLOROQUINE
     Indication: SYSTEMIC LUPUS ERYTHEMATOSUS
     Route: 065
  3. PREDNISONE. [Suspect]
     Active Substance: PREDNISONE
     Indication: IMMUNOSUPPRESSANT DRUG THERAPY
     Route: 065

REACTIONS (11)
  - Hypertriglyceridaemia [Recovering/Resolving]
  - Bacterial infection [Recovering/Resolving]
  - Sepsis [Unknown]
  - Injury [Unknown]
  - Cytomegalovirus infection [Recovering/Resolving]
  - Erythema [Recovering/Resolving]
  - Skin lesion [Recovering/Resolving]
  - Lymphadenopathy [Recovering/Resolving]
  - Blood fibrinogen decreased [Recovering/Resolving]
  - Haemophagocytic lymphohistiocytosis [Recovering/Resolving]
  - Splenomegaly [Recovering/Resolving]
